FAERS Safety Report 10883260 (Version 3)
Quarter: 2015Q1

REPORT INFORMATION
  Report Type: Spontaneous
  Country: US (occurrence: US)
  Receive Date: 20150303
  Receipt Date: 20150314
  Transmission Date: 20150721
  Serious: No
  Sender: FDA-Public Use
  Company Number: US-009507513-1503USA001125

PATIENT
  Weight: 60.77 kg

DRUGS (1)
  1. NEXPLANON [Suspect]
     Active Substance: ETONOGESTREL
     Dosage: STRENGTH 68MG, 1 ROD/ONCE EVERY THREE YEARS
     Route: 059
     Dates: start: 20140903

REACTIONS (2)
  - Device breakage [Recovered/Resolved]
  - No adverse event [Unknown]
